FAERS Safety Report 23232189 (Version 1)
Quarter: 2023Q4

REPORT INFORMATION
  Report Type: Spontaneous
  Country: US (occurrence: US)
  Receive Date: 20231127
  Receipt Date: 20231127
  Transmission Date: 20240109
  Serious: Yes (Other)
  Sender: FDA-Public Use
  Company Number: US-Fresenius Medical Care Renal Therapies Group-FMC-2311-001243

PATIENT
  Age: 29 Year
  Sex: Female
  Weight: 53 kg

DRUGS (3)
  1. DELFLEX WITH DEXTROSE 1.5% LOW MAGNESIUM LOW CALCIUM [Suspect]
     Active Substance: CALCIUM CHLORIDE\DEXTROSE\MAGNESIUM CHLORIDE\SODIUM CHLORIDE\SODIUM LACTATE
     Dosage: EXCHANGES 5, FILL VOLUME 2100 ML, DWELL TIME 1.75 HOURS, LAST FILL 700 ML, DAYTIME DWELL N/A.
     Route: 033
  2. DELFLEX WITH DEXTROSE 2.5% LOW MAGNESIUM LOW CALCIUM [Suspect]
     Active Substance: CALCIUM CHLORIDE\DEXTROSE\MAGNESIUM CHLORIDE\SODIUM CHLORIDE\SODIUM LACTATE
     Dosage: EXCHANGES 5, FILL VOLUME 2100 ML, DWELL TIME 1.75 HOURS, LAST FILL 700 ML, DAYTIME DWELL N/A.
     Route: 033
  3. DELFLEX WITH DEXTROSE 4.25% LOW MAGNESIUM LOW CALCIUM [Suspect]
     Active Substance: CALCIUM CHLORIDE\DEXTROSE\MAGNESIUM CHLORIDE\SODIUM CHLORIDE\SODIUM LACTATE
     Dosage: EXCHANGES 5, FILL VOLUME 2100 ML, DWELL TIME 1.75 HOURS, LAST FILL 700 ML, DAYTIME DWELL N/A.
     Route: 033

REACTIONS (1)
  - Peritonitis bacterial [Recovered/Resolved]
